FAERS Safety Report 6371482-3 (Version None)
Quarter: 2009Q3

REPORT INFORMATION
  Report Type: 
  Country: None (occurrence: None)
  Receive Date: 20090923
  Receipt Date: 20080609
  Transmission Date: 20100115
  Serious: Yes (Other)
  Sender: FDA-Public Use
  Company Number: US-ASTRAZENECA-2007UW09620

PATIENT
  Age: 418 Month
  Sex: Male
  Weight: 116.1 kg

DRUGS (8)
  1. SEROQUEL [Suspect]
     Indication: BIPOLAR DISORDER
     Route: 048
     Dates: start: 20040901
  2. SEROQUEL [Suspect]
     Route: 048
     Dates: start: 20041013
  3. TRAZODONE [Concomitant]
     Dosage: 100 MG 2 QHS, 200 MG AT BEDTIME
     Route: 048
     Dates: start: 20071115
  4. GEODON [Concomitant]
     Route: 048
     Dates: start: 20071115
  5. RISPERDAL [Concomitant]
     Dosage: 2 MG-4 MG 1 QHS
     Route: 048
     Dates: start: 20060724
  6. WELLBUTRIN [Concomitant]
     Dosage: 2 MG-4 MG 1 QHS
     Route: 048
     Dates: start: 20060724
  7. DEPAKOTE [Concomitant]
     Route: 048
     Dates: start: 20070325
  8. COGENTIN [Concomitant]
     Route: 065

REACTIONS (1)
  - PANCREATITIS ACUTE [None]
